FAERS Safety Report 18023567 (Version 2)
Quarter: 2020Q3

REPORT INFORMATION
  Report Type: Spontaneous
  Country: US (occurrence: US)
  Receive Date: 20200714
  Receipt Date: 20200729
  Transmission Date: 20201103
  Serious: No
  Sender: FDA-Public Use
  Company Number: US-BAUSCH-BL-2020-017316

PATIENT
  Age: 67 Year
  Sex: Female

DRUGS (2)
  1. DOXYCYCLINE. [Suspect]
     Active Substance: DOXYCYCLINE
     Indication: EYE INFECTION
     Dosage: MONTH AGO FROM THE FOLLOW UP REPORT
     Route: 048
     Dates: start: 202006, end: 2020
  2. ERYTHROMYCIN. [Suspect]
     Active Substance: ERYTHROMYCIN
     Indication: EYE INFECTION
     Dosage: MONTH AGO FROM THE FOLLOW UP REPORT
     Route: 047
     Dates: start: 202006, end: 2020

REACTIONS (3)
  - Eye irritation [Recovered/Resolved]
  - Drug ineffective [Unknown]
  - Ocular hyperaemia [Recovering/Resolving]

NARRATIVE: CASE EVENT DATE: 2020
